FAERS Safety Report 5210308-8 (Version None)
Quarter: 2007Q1

REPORT INFORMATION
  Report Type: 
  Country: None (occurrence: None)
  Receive Date: 20070117
  Receipt Date: 20070108
  Transmission Date: 20070707
  Serious: Yes (Congenital Anomaly)
  Sender: FDA-Public Use
  Company Number: PHEH2007US00713

PATIENT
  Age: 3 Week
  Sex: Female
  Weight: 3.129 kg

DRUGS (4)
  1. TRILEPTAL [Suspect]
     Dosage: UNK, UNK
     Route: 064
  2. TEGRETOL [Suspect]
     Route: 064
  3. ORAL CONTRACEPTIVE NOS [Concomitant]
     Route: 064
  4. IRON [Concomitant]
     Route: 064

REACTIONS (4)
  - ATRIAL SEPTAL DEFECT [None]
  - PATENT DUCTUS ARTERIOSUS [None]
  - PULMONARY ARTERY STENOSIS CONGENITAL [None]
  - VENTRICULAR SEPTAL DEFECT [None]
